FAERS Safety Report 6524977-3 (Version None)
Quarter: 2010Q1

REPORT INFORMATION
  Report Type: 
  Country: None (occurrence: None)
  Receive Date: 20100104
  Receipt Date: 20091223
  Transmission Date: 20100710
  Serious: Yes (Hospitalization)
  Sender: FDA-Public Use
  Company Number: US-ALEXION-A200901091

PATIENT

DRUGS (2)
  1. SOLIRIS [Suspect]
     Indication: PAROXYSMAL NOCTURNAL HAEMOGLOBINURIA
     Dosage: 600 MG, Q WK
     Route: 042
     Dates: start: 20090824
  2. SOLIRIS [Suspect]
     Dosage: 900 MG, EVERY 2 WEEKS
     Route: 042
     Dates: start: 20091005, end: 20091203

REACTIONS (2)
  - ACUTE MYELOID LEUKAEMIA [None]
  - BLAST CRISIS IN MYELOGENOUS LEUKAEMIA [None]
